FAERS Safety Report 6224603-7 (Version None)
Quarter: 2009Q2

REPORT INFORMATION
  Report Type: 
  Country: None (occurrence: None)
  Receive Date: 20090612
  Receipt Date: 20090323
  Transmission Date: 20091009
  Serious: No
  Sender: FDA-Public Use
  Company Number: US-ABBOTT-09P-163-0564266-00

PATIENT
  Sex: Female
  Weight: 111.68 kg

DRUGS (12)
  1. HUMIRA [Suspect]
     Indication: CROHN'S DISEASE
     Dates: start: 20060101, end: 20060101
  2. HUMIRA [Suspect]
     Indication: RHEUMATOID ARTHRITIS
     Dates: start: 20060101, end: 20070101
  3. HUMIRA [Suspect]
     Indication: PSORIASIS
  4. HUMIRA [Suspect]
     Indication: CROHN'S DISEASE
     Route: 058
     Dates: start: 20080101
  5. HUMIRA [Suspect]
     Indication: RHEUMATOID ARTHRITIS
  6. HUMIRA [Suspect]
     Indication: PSORIASIS
  7. BACLOFEN [Concomitant]
     Indication: MUSCLE SPASMS
     Route: 048
  8. CELEBREX [Concomitant]
     Indication: ARTHRITIS
     Route: 048
  9. NEXIUM [Concomitant]
     Indication: GASTROOESOPHAGEAL REFLUX DISEASE
     Route: 048
  10. ISONIAZID [Concomitant]
     Indication: DRUG USE FOR UNKNOWN INDICATION
     Route: 048
     Dates: start: 20081101
  11. VITAMIN B6 [Concomitant]
     Indication: PROPHYLAXIS
     Route: 048
  12. SINGULAIR [Concomitant]
     Indication: SEASONAL ALLERGY
     Route: 048

REACTIONS (2)
  - PSORIASIS [None]
  - RASH [None]
